FAERS Safety Report 20781130 (Version 1)
Quarter: 2022Q2

REPORT INFORMATION
  Report Type: Spontaneous
  Country: US (occurrence: US)
  Receive Date: 20220504
  Receipt Date: 20220504
  Transmission Date: 20220720
  Serious: No
  Sender: FDA-Public Use
  Company Number: US-MACLEODS PHARMACEUTICALS US LTD-MAC2022035399

PATIENT

DRUGS (1)
  1. MONTELUKAST SODIUM [Suspect]
     Active Substance: MONTELUKAST SODIUM
     Indication: Respiration abnormal
     Dosage: 10 MILLIGRAM, PRN (AS NEEDED INTERMITTENTLY)
     Route: 065
     Dates: start: 202201

REACTIONS (3)
  - Anxiety [Unknown]
  - Depression [Unknown]
  - Self-injurious ideation [Unknown]
